FAERS Safety Report 4751524-9 (Version None)
Quarter: 2005Q3

REPORT INFORMATION
  Report Type: 
  Country: None (occurrence: None)
  Receive Date: 20050824
  Receipt Date: 20050817
  Transmission Date: 20060218
  Serious: Yes (Other)
  Sender: FDA-Public Use
  Company Number: 200516275US

PATIENT
  Sex: Female
  Weight: 50.9 kg

DRUGS (3)
  1. TAXOTERE [Suspect]
     Indication: BREAST CANCER
     Route: 042
     Dates: start: 20050422, end: 20050630
  2. DECADRON [Concomitant]
     Indication: CHEMOTHERAPY
     Dosage: DOSE: UNKNOWN
     Route: 048
  3. DECADRON [Concomitant]
     Indication: PREMEDICATION
     Dosage: DOSE: UNKNOWN
     Route: 048

REACTIONS (2)
  - CAPILLARY LEAK SYNDROME [None]
  - OEDEMA [None]
